FAERS Safety Report 9118742 (Version 2)
Quarter: 2013Q1

REPORT INFORMATION
  Report Type: Spontaneous
  Country: US (occurrence: US)
  Receive Date: 20130226
  Receipt Date: 20130319
  Transmission Date: 20140127
  Serious: Yes (Other)
  Sender: FDA-Public Use
  Company Number: US-PFIZER INC-2013068214

PATIENT
  Age: 46 Year
  Sex: Female
  Weight: 72 kg

DRUGS (1)
  1. NEURONTIN [Suspect]
     Indication: BACK DISORDER
     Dosage: DAILY DOSE OF 2400MG UNKNOWN FREQUENCY
     Route: 048

REACTIONS (2)
  - Spinal cord disorder [Unknown]
  - Dysuria [Unknown]
